FAERS Safety Report 8500523-X (Version None)
Quarter: 2012Q3

REPORT INFORMATION
  Report Type: 
  Country: None (occurrence: None)
  Receive Date: 20120705
  Receipt Date: 20120705
  Transmission Date: 20120928
  Serious: No
  Sender: FDA-Public Use
  Company Number: None

PATIENT
  Age: 72 Year
  Sex: Male

DRUGS (2)
  1. QUETIAPINE [Suspect]
     Indication: BIPOLAR DISORDER
     Dosage: 50 MG HS PO
     Route: 048
     Dates: start: 20120412, end: 20120512
  2. QUETIAPINE [Suspect]
     Indication: INSOMNIA
     Dosage: 50 MG HS PO
     Route: 048
     Dates: start: 20120412, end: 20120512

REACTIONS (3)
  - INCREASED APPETITE [None]
  - WEIGHT INCREASED [None]
  - BLOOD GLUCOSE INCREASED [None]
